FAERS Safety Report 4727618-0 (Version None)
Quarter: 2005Q3

REPORT INFORMATION
  Report Type: 
  Country: None (occurrence: None)
  Receive Date: 20050728
  Receipt Date: 20050719
  Transmission Date: 20060218
  Serious: Yes (Hospitalization)
  Sender: FDA-Public Use
  Company Number: US-SANOFI-SYNTHELABO-A03200502164

PATIENT
  Sex: Female

DRUGS (6)
  1. PLAVIX [Suspect]
     Indication: ACUTE CORONARY SYNDROME
     Route: 048
     Dates: start: 20050306, end: 20050606
  2. LIPITOR [Concomitant]
     Route: 048
  3. IMDUR [Concomitant]
     Route: 048
  4. SYNTHROID [Concomitant]
     Route: 048
  5. ASPIRIN [Concomitant]
     Route: 048
  6. NITROGLYCERIN [Concomitant]
     Route: 060

REACTIONS (5)
  - CHEST PAIN [None]
  - DISSEMINATED INTRAVASCULAR COAGULATION [None]
  - HEPATOMEGALY [None]
  - MENINGITIS [None]
  - SPLENOMEGALY [None]
